FAERS Safety Report 8896282 (Version 1)
Quarter: 2012Q4

REPORT INFORMATION
  Report Type: Spontaneous
  Country: ES (occurrence: None)
  Receive Date: 20121031
  Receipt Date: 20121031
  Transmission Date: 20130627
  Serious: Yes (Death)
  Sender: FDA-Public Use
  Company Number: 2012P1061127

PATIENT
  Age: 2 Year
  Sex: Male

DRUGS (1)
  1. MEFLOQUINE [Suspect]

REACTIONS (1)
  - Sudden death [None]
